FAERS Safety Report 4382656-5 (Version None)
Quarter: 2004Q2

REPORT INFORMATION
  Report Type: 
  Country: None (occurrence: None)
  Receive Date: 20040622
  Receipt Date: 20040610
  Transmission Date: 20050107
  Serious: Yes (Other)
  Sender: FDA-Public Use
  Company Number: 361791

PATIENT
  Sex: Male

DRUGS (3)
  1. DILATREND [Suspect]
     Indication: CARDIAC FAILURE
     Route: 048
     Dates: start: 20040215, end: 20040215
  2. ASPIRIN [Concomitant]
     Route: 048
  3. DILTIAZEM [Concomitant]

REACTIONS (2)
  - DEPRESSION [None]
  - GASTROINTESTINAL HAEMORRHAGE [None]
